FAERS Safety Report 23820059 (Version 1)
Quarter: 2024Q2

REPORT INFORMATION
  Report Type: Spontaneous
  Country: US (occurrence: US)
  Receive Date: 20240506
  Receipt Date: 20240506
  Transmission Date: 20240715
  Serious: No
  Sender: FDA-Public Use
  Company Number: US-TOLMAR, INC.-24US048135

PATIENT
  Sex: Male

DRUGS (2)
  1. KETOCONAZOLE [Suspect]
     Active Substance: KETOCONAZOLE
     Indication: Dandruff
     Dosage: UNK UNK, 2-3/WEEK
     Route: 003
     Dates: start: 202402
  2. KETOCONAZOLE [Suspect]
     Active Substance: KETOCONAZOLE
     Indication: Dry skin

REACTIONS (1)
  - Skin irritation [Recovering/Resolving]
